FAERS Safety Report 5873855-1 (Version None)
Quarter: 2008Q3

REPORT INFORMATION
  Report Type: 
  Country: None (occurrence: None)
  Receive Date: 20080908
  Receipt Date: 20080825
  Transmission Date: 20090109
  Serious: Yes (Other)
  Sender: FDA-Public Use
  Company Number: US-ELI_LILLY_AND_COMPANY-US200808005043

PATIENT
  Sex: Female

DRUGS (3)
  1. HUMALOG [Suspect]
  2. HUMALOG [Suspect]
  3. HUMALOG [Suspect]

REACTIONS (14)
  - ARTHROPATHY [None]
  - DIABETIC NEUROPATHY [None]
  - DRUG DISPENSING ERROR [None]
  - DYSSTASIA [None]
  - HYPOAESTHESIA [None]
  - KNEE ARTHROPLASTY [None]
  - MOBILITY DECREASED [None]
  - MUSCULAR WEAKNESS [None]
  - MUSCULOSKELETAL PAIN [None]
  - NERVE COMPRESSION [None]
  - ROTATOR CUFF REPAIR [None]
  - SOMNOLENCE [None]
  - SPINAL COLUMN STENOSIS [None]
  - WEIGHT INCREASED [None]
